FAERS Safety Report 16169465 (Version 2)
Quarter: 2019Q2

REPORT INFORMATION
  Report Type: Spontaneous
  Country: US (occurrence: US)
  Receive Date: 20190408
  Receipt Date: 20190410
  Transmission Date: 20190711
  Serious: No
  Sender: FDA-Public Use
  Company Number: US-009507513-1904USA003328

PATIENT
  Sex: Female

DRUGS (1)
  1. NEXPLANON [Suspect]
     Active Substance: ETONOGESTREL
     Dosage: 1 ROD
     Route: 059
     Dates: start: 2012

REACTIONS (3)
  - Incorrect product administration duration [Unknown]
  - Complication of device removal [Unknown]
  - Complication associated with device [Unknown]

NARRATIVE: CASE EVENT DATE: 2015
